FAERS Safety Report 14922616 (Version 1)
Quarter: 2018Q2

REPORT INFORMATION
  Report Type: Report from Study
  Country: US (occurrence: US)
  Receive Date: 20180522
  Receipt Date: 20180522
  Transmission Date: 20180711
  Serious: Yes (Other)
  Sender: FDA-Public Use
  Company Number: US-ASTELLAS-2018US023153

PATIENT
  Sex: Male

DRUGS (1)
  1. ISAVUCONAZOLE [Suspect]
     Active Substance: ISAVUCONAZOLE
     Indication: ACUTE MYELOID LEUKAEMIA
     Route: 048

REACTIONS (6)
  - Lung disorder [Unknown]
  - Renal disorder [Unknown]
  - Cardiac failure congestive [Unknown]
  - Transplant [Unknown]
  - Off label use [Unknown]
  - Diabetes mellitus [Unknown]
